FAERS Safety Report 24048608 (Version 1)
Quarter: 2024Q3

REPORT INFORMATION
  Report Type: Spontaneous
  Country: SE (occurrence: SE)
  Receive Date: 20240704
  Receipt Date: 20240704
  Transmission Date: 20241017
  Serious: Yes (Hospitalization)
  Sender: Haleon PLC
  Company Number: None

PATIENT
  Age: 63 Year
  Sex: Female

DRUGS (1)
  1. ACETAMINOPHEN [Suspect]
     Active Substance: ACETAMINOPHEN
     Indication: Product used for unknown indication

REACTIONS (8)
  - Acute hepatic failure [Unknown]
  - Toxicity to various agents [Unknown]
  - Metabolic acidosis [Unknown]
  - Accidental overdose [Unknown]
  - Encephalopathy [Unknown]
  - Analgesic drug level decreased [Unknown]
  - Acute kidney injury [Unknown]
  - Depressed level of consciousness [Unknown]

NARRATIVE: CASE EVENT DATE: 20240604
